FAERS Safety Report 14446875 (Version 1)
Quarter: 2018Q1

REPORT INFORMATION
  Report Type: Spontaneous
  Country: US (occurrence: US)
  Receive Date: 20180125
  Receipt Date: 20180125
  Transmission Date: 20180509
  Serious: No
  Sender: FDA-Public Use
  Company Number: None

PATIENT
  Age: 57 Year
  Sex: Male

DRUGS (1)
  1. IBRANCE [Suspect]
     Active Substance: PALBOCICLIB
     Indication: BREAST CANCER
     Dosage: 75MG DAILY (21 DAYS ON, 7 OFF) BY MOUTH
     Route: 048
     Dates: start: 20170929, end: 20171212

REACTIONS (2)
  - Depressed mood [None]
  - Multiple sclerosis [None]

NARRATIVE: CASE EVENT DATE: 20171212
